FAERS Safety Report 8270303-1 (Version None)
Quarter: 2012Q2

REPORT INFORMATION
  Report Type: 
  Country: None (occurrence: None)
  Receive Date: 20120410
  Receipt Date: 20120330
  Transmission Date: 20120825
  Serious: Yes (Hospitalization)
  Sender: FDA-Public Use
  Company Number: US-JNJFOC-20120306839

PATIENT
  Sex: Female
  Weight: 52.62 kg

DRUGS (9)
  1. REMICADE [Suspect]
     Indication: ARTHRITIS
     Route: 042
     Dates: start: 20100101
  2. REMICADE [Suspect]
     Route: 042
     Dates: start: 20090101
  3. CARDIZEM [Concomitant]
     Route: 048
  4. LIPITOR [Concomitant]
     Indication: BLOOD CHOLESTEROL
     Route: 048
  5. LASIX [Suspect]
     Indication: DIURETIC THERAPY
     Route: 048
     Dates: end: 20110101
  6. REMICADE [Suspect]
     Route: 042
     Dates: start: 20100101
  7. SYNTHROID [Concomitant]
     Indication: THYROID DISORDER
     Route: 048
  8. CARDIZEM [Concomitant]
     Indication: BLOOD PRESSURE
     Dosage: DOSE INCREASED FROM 3 POINT TO 6 POINT SOMETHING
     Route: 048
  9. REMICADE [Suspect]
     Indication: PSORIASIS
     Route: 042
     Dates: start: 20090101

REACTIONS (4)
  - TRANSIENT ISCHAEMIC ATTACK [None]
  - POLLAKIURIA [None]
  - ECHOCARDIOGRAM ABNORMAL [None]
  - ABNORMAL LOSS OF WEIGHT [None]
